FAERS Safety Report 13710346 (Version 1)
Quarter: 2017Q2

REPORT INFORMATION
  Report Type: Spontaneous
  Country: US (occurrence: US)
  Receive Date: 20170630
  Receipt Date: 20170630
  Transmission Date: 20170830
  Serious: Yes (Other)
  Sender: FDA-Public Use
  Company Number: None

PATIENT
  Age: 36 Year
  Sex: Female
  Weight: 58.5 kg

DRUGS (2)
  1. AMOX-CLAV [Suspect]
     Active Substance: AMOXICILLIN\CLAVULANATE POTASSIUM
     Indication: EAR INFECTION
     Dosage: ?          OTHER STRENGTH:MG;QUANTITY:7.3 ML;?
     Route: 048
     Dates: start: 20170620, end: 20170628
  2. PRENATAL VITAMINS [Concomitant]
     Active Substance: VITAMINS

REACTIONS (4)
  - Sleep disorder [None]
  - Exposure during breast feeding [None]
  - Tooth discolouration [None]
  - Diarrhoea [None]

NARRATIVE: CASE EVENT DATE: 20170622
